FAERS Safety Report 8500901 (Version 4)
Quarter: 2013Q2

REPORT INFORMATION
  Report Type: Spontaneous
  Country: US (occurrence: US)
  Receive Date: 20120410
  Receipt Date: 20130517
  Transmission Date: 20140414
  Serious: No
  Sender: FDA-Public Use
  Company Number: US-PFIZER INC-2012085418

PATIENT
  Age: 69 Year
  Sex: Female
  Weight: 72.56 kg

DRUGS (14)
  1. EFFEXOR XR [Suspect]
     Dosage: UNK
  2. VENLAFAXINE HYDROCHLORIDE [Suspect]
     Indication: DEPRESSION
     Dosage: UNK
  3. VENLAFAXINE HYDROCHLORIDE [Suspect]
     Indication: ANXIETY
     Dosage: 225 MG, DAILY
     Dates: start: 2011
  4. VENLAFAXINE HYDROCHLORIDE [Suspect]
     Dosage: 150 MG, 2X/DAY
     Dates: start: 201203
  5. LORAZEPAM [Concomitant]
     Indication: SLEEP DISORDER
     Dosage: 1 MG, DAILY
  6. INDERAL [Concomitant]
     Indication: TREMOR
     Dosage: 20 MG, 2X/DAY
     Route: 048
  7. NEXIUM [Concomitant]
     Indication: GASTROOESOPHAGEAL REFLUX DISEASE
     Dosage: 40 MG, DAILY
  8. RANITIDINE [Concomitant]
     Indication: GASTROOESOPHAGEAL REFLUX DISEASE
     Dosage: 300 MG, DAILY
  9. LEVOTHYROXINE [Concomitant]
     Indication: THYROID DISORDER
     Dosage: 100 UG, DAILY
  10. MELOXICAM [Concomitant]
     Indication: ARTHRITIS
     Dosage: 15 MG, DAILY
  11. MELOXICAM [Concomitant]
     Indication: ARTHRALGIA
  12. METFORMIN [Concomitant]
     Indication: BLOOD GLUCOSE ABNORMAL
     Dosage: 1000 MG, 2X/DAY
  13. GLIMEPIRIDE [Concomitant]
     Indication: BLOOD GLUCOSE ABNORMAL
     Dosage: 1 MG, DAILY
  14. LOVASTATIN [Concomitant]
     Indication: BODY FAT DISORDER
     Dosage: 40 MG, DAILY

REACTIONS (5)
  - Drug ineffective [Unknown]
  - Withdrawal syndrome [Not Recovered/Not Resolved]
  - Crying [Not Recovered/Not Resolved]
  - Nervousness [Not Recovered/Not Resolved]
  - Drug intolerance [Unknown]
